FAERS Safety Report 4588096-8 (Version None)
Quarter: 2005Q1

REPORT INFORMATION
  Report Type: 
  Country: None (occurrence: None)
  Receive Date: 20050216
  Receipt Date: 20050127
  Transmission Date: 20050727
  Serious: Yes (Other)
  Sender: FDA-Public Use
  Company Number: EWC050242463

PATIENT
  Age: 83 Year
  Sex: Female
  Weight: 45 kg

DRUGS (8)
  1. FORTEO [Suspect]
     Indication: OSTEOPOROSIS
     Dosage: 20 UG/1 DAY
     Dates: start: 20041202, end: 20041215
  2. CALCIUM CARBONATE W/COLECALCIFEROL [Concomitant]
  3. LASIX [Concomitant]
  4. COZAAR [Concomitant]
  5. INDURGAN (OMEPRAZOLE RATIOPHARM) [Concomitant]
  6. LUDIOMIL (MAPROTILINE MESILATE) [Concomitant]
  7. XANAX (ALPRAZOLAM DUM) [Concomitant]
  8. TICLOPIDINE HCL [Concomitant]

REACTIONS (6)
  - BLOOD CREATININE INCREASED [None]
  - CARDIAC FAILURE CONGESTIVE [None]
  - CONDITION AGGRAVATED [None]
  - HAEMATOCRIT DECREASED [None]
  - RED BLOOD CELL COUNT DECREASED [None]
  - WHITE BLOOD CELL COUNT DECREASED [None]
